FAERS Safety Report 24081187 (Version 1)
Quarter: 2024Q3

REPORT INFORMATION
  Report Type: Spontaneous
  Country: US (occurrence: US)
  Receive Date: 20240711
  Receipt Date: 20240711
  Transmission Date: 20241017
  Serious: No
  Sender: KRAMER LABORATORIES
  Company Number: US-KRAMERLABS-2024-US-010734

PATIENT
  Age: 65 Year
  Sex: Male
  Weight: 97.52 kg

DRUGS (3)
  1. COSMETICS [Suspect]
     Active Substance: COSMETICS
     Indication: Product used for unknown indication
     Dosage: USED PRIOR TO SHAMPOOING HAIR AS DIRECTED, ONE TIME ONLY
     Route: 061
     Dates: start: 20240205, end: 20240205
  2. NIZORAL A-D [Suspect]
     Active Substance: KETOCONAZOLE
     Indication: Product used for unknown indication
     Dosage: USED AS DIRECTED; ONE TIME ONLY
     Route: 061
     Dates: start: 20240205, end: 20240205
  3. PRASUGREL [Concomitant]
     Active Substance: PRASUGREL

REACTIONS (2)
  - Rash [Not Recovered/Not Resolved]
  - Pruritus [Not Recovered/Not Resolved]

NARRATIVE: CASE EVENT DATE: 20240206
